FAERS Safety Report 12379427 (Version 1)
Quarter: 2016Q2

REPORT INFORMATION
  Report Type: Spontaneous
  Country: US (occurrence: US)
  Receive Date: 20160517
  Receipt Date: 20160517
  Transmission Date: 20160815
  Serious: No
  Sender: FDA-Public Use
  Company Number: US-TEIKOKU PHARMA USA-TPU2015-00258

PATIENT
  Age: 77 Year
  Sex: Male
  Weight: 90.8 kg

DRUGS (6)
  1. LIDODERM [Suspect]
     Active Substance: LIDOCAINE
     Indication: POST HERPETIC NEURALGIA
     Route: 061
     Dates: start: 20150605, end: 20150605
  2. ACYCLOVIR. [Concomitant]
     Active Substance: ACYCLOVIR
     Indication: VARICELLA
     Route: 048
  3. MORPHINE ER [Concomitant]
     Active Substance: MORPHINE
     Indication: PAIN
     Route: 048
  4. BENZALKONIUM CHLORIDE ADHES IVE PATCH [Suspect]
     Active Substance: BENZALKONIUM CHLORIDE
     Indication: HERPES ZOSTER
     Route: 061
     Dates: start: 20150605, end: 20150605
  5. LYRICA [Concomitant]
     Active Substance: PREGABALIN
     Indication: NEURALGIA
     Route: 048
  6. OXYCODONE [Concomitant]
     Active Substance: OXYCODONE
     Indication: PAIN
     Route: 048

REACTIONS (4)
  - Wrong technique in product usage process [Unknown]
  - Incorrect drug administration duration [Unknown]
  - Application site erythema [Not Recovered/Not Resolved]
  - Multiple use of single-use product [Unknown]

NARRATIVE: CASE EVENT DATE: 20150605
